FAERS Safety Report 5825159 (Version 2)
Quarter: 2013Q2

REPORT INFORMATION
  Report Type: Spontaneous
  Country: US (occurrence: US)
  Receive Date: 20050624
  Receipt Date: 20130603
  Transmission Date: 20140414
  Serious: Yes (Hospitalization, Other)
  Sender: FDA-Public Use
  Company Number: US-AMGEN-US138572

PATIENT
  Age: 64 Year
  Sex: Male
  Weight: 95.28 kg

DRUGS (6)
  1. ENBREL [Suspect]
     Indication: PSORIATIC ARTHROPATHY
     Dosage: 50 MG, QWK
     Route: 065
     Dates: start: 20040601
  2. ENBREL [Suspect]
     Indication: PSORIASIS
  3. METOPROLOL [Concomitant]
     Dosage: 25 MG, QD
     Dates: start: 200406
  4. NICOTINIC ACID [Concomitant]
     Dosage: UNK
     Dates: start: 200409
  5. LOVASTATIN [Concomitant]
     Dosage: UNK
     Dates: start: 200409
  6. LISINOPRIL [Concomitant]
     Dosage: 10 MG, QD
     Dates: start: 200407

REACTIONS (5)
  - Vascular graft [Not Recovered/Not Resolved]
  - Joint stiffness [Unknown]
  - Chest discomfort [Recovered/Resolved]
  - Psoriatic arthropathy [Unknown]
  - Psoriasis [Unknown]
